FAERS Safety Report 8429005-0 (Version None)
Quarter: 2012Q2

REPORT INFORMATION
  Report Type: 
  Country: None (occurrence: None)
  Receive Date: 20120612
  Receipt Date: 20120531
  Transmission Date: 20120825
  Serious: Yes (Other)
  Sender: FDA-Public Use
  Company Number: CA-JNJFOC-20120601758

PATIENT
  Sex: Male
  Weight: 107 kg

DRUGS (4)
  1. REMICADE [Suspect]
     Route: 042
     Dates: start: 20120531
  2. ACETAMINOPHEN [Concomitant]
     Indication: ARTHRITIS
     Dosage: 2 TABLETS
     Route: 065
     Dates: start: 20120529
  3. NAPROSYN [Concomitant]
     Route: 065
     Dates: start: 20120529
  4. REMICADE [Suspect]
     Indication: PSORIATIC ARTHROPATHY
     Route: 042
     Dates: start: 20120517

REACTIONS (3)
  - PARAESTHESIA [None]
  - INFUSION RELATED REACTION [None]
  - PHARYNGEAL OEDEMA [None]
